FAERS Safety Report 7519499-7 (Version None)
Quarter: 2011Q2

REPORT INFORMATION
  Report Type: 
  Country: None (occurrence: None)
  Receive Date: 20110602
  Receipt Date: 20101220
  Transmission Date: 20111010
  Serious: Yes (Hospitalization, Other)
  Sender: FDA-Public Use
  Company Number: US-BAYER-201030150NA

PATIENT
  Age: 43 Year
  Sex: Female
  Weight: 133 kg

DRUGS (11)
  1. FEXOFENADINE [Concomitant]
  2. ASPIRIN [Concomitant]
  3. CALCIUM +VIT D [Concomitant]
     Dosage: UNK MG, UNK
  4. YASMIN [Suspect]
     Indication: PRODUCT USED FOR UNKNOWN INDICATION
     Dosage: UNK
     Route: 048
     Dates: start: 20060401, end: 20070401
  5. BUDEPRION [Concomitant]
     Dosage: 300 MG, UNK
  6. ALLEGRA [Concomitant]
     Dosage: UNK UNK, PRN
  7. GLUCOSAMINE W/CHONDROITIN SULFATE [Concomitant]
  8. MULTI-VITAMIN [Concomitant]
  9. FISH OIL [Concomitant]
  10. SYNTHROID [Concomitant]
     Dosage: 175 MCG/24HR, UNK
  11. VITAMIN E [Concomitant]
     Dosage: 800 IU, QD

REACTIONS (9)
  - DYSPNOEA [None]
  - CHEST DISCOMFORT [None]
  - DEPRESSION [None]
  - PALLOR [None]
  - DEEP VEIN THROMBOSIS [None]
  - THROAT TIGHTNESS [None]
  - HYPERHIDROSIS [None]
  - PULMONARY EMBOLISM [None]
  - DIZZINESS [None]
